FAERS Safety Report 8620694-4 (Version None)
Quarter: 2012Q3

REPORT INFORMATION
  Report Type: 
  Country: None (occurrence: None)
  Receive Date: 20120824
  Receipt Date: 20120815
  Transmission Date: 20120928
  Serious: Yes (Other)
  Sender: FDA-Public Use
  Company Number: US-JNJFOC-20120809315

PATIENT
  Sex: Female
  Weight: 79.38 kg

DRUGS (7)
  1. FOLIC ACID [Concomitant]
     Route: 048
     Dates: start: 20110801
  2. LEVOTHYROXINE SODIUM [Concomitant]
     Indication: THYROID DISORDER
     Route: 048
  3. CYMBALTA [Concomitant]
     Indication: DEPRESSION
     Route: 048
     Dates: start: 20110101
  4. UNKNOWN MEDICATION [Concomitant]
     Indication: FIBROMYALGIA
     Route: 048
     Dates: end: 20120201
  5. LIPITOR [Concomitant]
     Indication: BLOOD CHOLESTEROL
     Route: 048
  6. REMICADE [Suspect]
     Indication: RHEUMATOID ARTHRITIS
     Route: 042
     Dates: start: 20120801
  7. REMICADE [Suspect]
     Dosage: 6 VIALS
     Route: 042
     Dates: start: 20110801

REACTIONS (5)
  - OEDEMA PERIPHERAL [None]
  - PAIN [None]
  - DEPRESSION [None]
  - FATIGUE [None]
  - INFLAMMATION [None]
